FAERS Safety Report 7769419-5 (Version None)
Quarter: 2011Q3

REPORT INFORMATION
  Report Type: 
  Country: None (occurrence: None)
  Receive Date: 20110922
  Receipt Date: 20110715
  Transmission Date: 20111222
  Serious: No
  Sender: FDA-Public Use
  Company Number: US-ASTRAZENECA-2011SE42627

PATIENT
  Age: 16 Year
  Sex: Male

DRUGS (3)
  1. SEROQUEL XR [Suspect]
     Route: 048
     Dates: start: 20110601
  2. SEROQUEL XR [Suspect]
     Indication: ATTENTION DEFICIT/HYPERACTIVITY DISORDER
     Route: 048
     Dates: start: 20110201
  3. SEROQUEL XR [Suspect]
     Route: 048
     Dates: start: 20110701

REACTIONS (4)
  - AGITATION [None]
  - ABNORMAL BEHAVIOUR [None]
  - MOOD ALTERED [None]
  - OFF LABEL USE [None]
